FAERS Safety Report 20598236 (Version 1)
Quarter: 2022Q1

REPORT INFORMATION
  Report Type: Other
  Country: US (occurrence: None)
  Receive Date: 20220315
  Receipt Date: 20220315
  Transmission Date: 20220423
  Serious: Yes (Hospitalization, Other)
  Sender: FDA-Public Use
  Company Number: US-ROCHE-3041298

PATIENT
  Sex: Female
  Weight: 106.69 kg

DRUGS (16)
  1. OCREVUS [Suspect]
     Active Substance: OCRELIZUMAB
     Indication: Relapsing-remitting multiple sclerosis
     Dosage: 300MG ON DAY 1 AND DAY 15 LATER 600MG EVERY 6 MONTHS
     Route: 042
     Dates: start: 201901
  2. SYNTHROID [Concomitant]
     Active Substance: LEVOTHYROXINE SODIUM
     Indication: Autoimmune thyroiditis
     Dosage: STARTED BEFORE OCREVUS
     Route: 048
  3. SYNTHROID [Concomitant]
     Active Substance: LEVOTHYROXINE SODIUM
     Indication: Hypothyroidism
  4. AMBIEN [Concomitant]
     Active Substance: ZOLPIDEM TARTRATE
     Dosage: TAKES AT BEDTIME; STARTED BEFORE OCREVUS
     Route: 048
  5. VITAMIN D2 [Concomitant]
     Active Substance: ERGOCALCIFEROL
     Indication: Vitamin D deficiency
     Dosage: STARTED BEFORE OCREVUS
     Route: 048
  6. TOPROL XL [Concomitant]
     Active Substance: METOPROLOL SUCCINATE
     Indication: Migraine
     Dosage: STARTED BEFORE OCREVUS
     Route: 048
  7. AMERGE [Concomitant]
     Active Substance: NARATRIPTAN HYDROCHLORIDE
     Indication: Migraine
     Dosage: 1 TAB AS NEEDED; STARTED BEFORE OCREVUS
     Route: 048
  8. TIZANIDINE [Concomitant]
     Active Substance: TIZANIDINE
     Indication: Muscle spasms
     Route: 048
     Dates: start: 2018
  9. CYANOCOBALAMIN [Concomitant]
     Active Substance: CYANOCOBALAMIN
     Indication: Vitamin B12 deficiency
     Dosage: STARTED BEFORE OCREVUS
     Route: 057
  10. GABAPENTIN [Concomitant]
     Active Substance: GABAPENTIN
     Indication: Neuralgia
     Route: 048
     Dates: start: 2018
  11. CYMBALTA [Concomitant]
     Active Substance: DULOXETINE HYDROCHLORIDE
     Indication: Fibromyalgia
     Route: 048
     Dates: start: 2020
  12. SINGULAIR [Concomitant]
     Active Substance: MONTELUKAST SODIUM
     Indication: Hypersensitivity
     Dosage: STARTED BEFORE OCREVUS
     Route: 048
  13. COMPAZINE [Concomitant]
     Active Substance: PROCHLORPERAZINE MALEATE
     Indication: Nausea
     Route: 048
  14. ZOFRAN [Concomitant]
     Active Substance: ONDANSETRON HYDROCHLORIDE
     Indication: Nausea
     Dosage: STARTED BEFORE OCREVUS
     Route: 048
  15. DULERA [Concomitant]
     Active Substance: FORMOTEROL FUMARATE DIHYDRATE\MOMETASONE FUROATE
     Indication: Asthma
     Dosage: DOSE 200-5 MCG/PUFF ; TAKES 2 PUFFS AT NIGHT; STARTED BEFORE OCREVUS
     Route: 055
  16. PROAIR HFA [Concomitant]
     Active Substance: ALBUTEROL SULFATE
     Indication: Asthma
     Dosage: (2) 90 MCG PUFFS AS NEEDED; STARTED BEFORE OCREVUS
     Route: 055

REACTIONS (13)
  - Thrombosis [Recovered/Resolved]
  - Ankle fracture [Recovered/Resolved]
  - Dizziness [Not Recovered/Not Resolved]
  - COVID-19 [Recovered/Resolved]
  - Hypersensitivity [Recovered/Resolved]
  - Fibromyalgia [Not Recovered/Not Resolved]
  - Throat irritation [Recovered/Resolved]
  - Pruritus [Recovered/Resolved]
  - Loss of consciousness [Unknown]
  - Pain in extremity [Unknown]
  - Upper respiratory tract infection [Unknown]
  - Vomiting [Unknown]
  - Diarrhoea [Unknown]

NARRATIVE: CASE EVENT DATE: 20200101
